FAERS Safety Report 24433219 (Version 3)
Quarter: 2025Q1

REPORT INFORMATION
  Report Type: Spontaneous
  Country: US (occurrence: US)
  Receive Date: 20241014
  Receipt Date: 20250204
  Transmission Date: 20250408
  Serious: Yes (Hospitalization, Other)
  Sender: SANOFI AVENTIS
  Company Number: US-SA-2024SA292220

PATIENT
  Age: 67 Year
  Sex: Female
  Weight: 76.86 kg

DRUGS (26)
  1. DUPIXENT [Suspect]
     Active Substance: DUPILUMAB
     Indication: Dermatitis atopic
     Dosage: 300 MG, QOW
     Route: 058
     Dates: start: 20240306
  2. BUPROPION [Suspect]
     Active Substance: BUPROPION
     Dates: end: 202501
  3. TYLENOL ARTHRITIS PAIN [Concomitant]
     Active Substance: ACETAMINOPHEN
  4. ESCITALOPRAM OXALATE [Concomitant]
     Active Substance: ESCITALOPRAM OXALATE
  5. PLAVIX [Concomitant]
     Active Substance: CLOPIDOGREL BISULFATE
  6. BUPROPION HYDROCHLORIDE [Concomitant]
     Active Substance: BUPROPION HYDROCHLORIDE
  7. CARVEDILOL [Concomitant]
     Active Substance: CARVEDILOL
  8. BETAMETHASONE VALERATE [Concomitant]
     Active Substance: BETAMETHASONE VALERATE
  9. NYSTATIN [Concomitant]
     Active Substance: NYSTATIN
  10. ESTRADIOL [Concomitant]
     Active Substance: ESTRADIOL
  11. METHENAMINE HIPPURATE [Concomitant]
     Active Substance: METHENAMINE HIPPURATE
  12. MYRBETRIQ [Concomitant]
     Active Substance: MIRABEGRON
  13. HYOSCYAMINE SULFATE [Concomitant]
     Active Substance: HYOSCYAMINE SULFATE
  14. REPATHA [Concomitant]
     Active Substance: EVOLOCUMAB
  15. CALCIUM [Concomitant]
     Active Substance: CALCIUM
  16. FISH OIL [Concomitant]
     Active Substance: FISH OIL
  17. ASPIRIN [Concomitant]
     Active Substance: ASPIRIN
  18. LOSARTAN POTASSIUM [Concomitant]
     Active Substance: LOSARTAN POTASSIUM
  19. AMLODIPINE BESYLATE AND BENAZEPRIL HYDROCHL. [Concomitant]
  20. METFORMIN [Concomitant]
     Active Substance: METFORMIN HYDROCHLORIDE
  21. TOPIRAMATE [Concomitant]
     Active Substance: TOPIRAMATE
  22. LAMICTAL [Concomitant]
     Active Substance: LAMOTRIGINE
  23. MECLIZINE HYDROCHLORIDE [Concomitant]
     Active Substance: MECLIZINE HYDROCHLORIDE
  24. FLUCONAZOLE [Concomitant]
     Active Substance: FLUCONAZOLE
  25. ZYRTEC [Concomitant]
     Active Substance: CETIRIZINE HYDROCHLORIDE
     Indication: Productive cough
  26. ZYRTEC [Concomitant]
     Active Substance: CETIRIZINE HYDROCHLORIDE
     Indication: Paranasal sinus hypersecretion

REACTIONS (8)
  - Seizure [Unknown]
  - Stent placement [Not Recovered/Not Resolved]
  - Irritable bowel syndrome [Recovering/Resolving]
  - Fear of injection [Unknown]
  - Dry skin [Not Recovered/Not Resolved]
  - Sleep disorder due to a general medical condition [Not Recovered/Not Resolved]
  - Herpes zoster [Not Recovered/Not Resolved]
  - Pain of skin [Not Recovered/Not Resolved]

NARRATIVE: CASE EVENT DATE: 20240101
